FAERS Safety Report 7497415-4 (Version None)
Quarter: 2011Q2

REPORT INFORMATION
  Report Type: 
  Country: None (occurrence: None)
  Receive Date: 20110523
  Receipt Date: 20110512
  Transmission Date: 20111010
  Serious: Yes (Other)
  Sender: FDA-Public Use
  Company Number: US-ASTRAZENECA-2011SE28826

PATIENT
  Age: 58 Year
  Sex: Female

DRUGS (2)
  1. CRESTOR [Suspect]
     Route: 048
     Dates: start: 20070101, end: 20110401
  2. OTHER MEDICATIONS [Concomitant]

REACTIONS (1)
  - CEREBROVASCULAR ACCIDENT [None]
